FAERS Safety Report 4415703-2 (Version None)
Quarter: 2004Q2

REPORT INFORMATION
  Report Type: 
  Country: None (occurrence: None)
  Receive Date: 20040630
  Receipt Date: 20040225
  Transmission Date: 20050107
  Serious: Yes (Hospitalization, Other)
  Sender: FDA-Public Use
  Company Number: 2004013086

PATIENT
  Age: 29 Year
  Sex: Male

DRUGS (4)
  1. ZOLOFT [Suspect]
     Indication: ILL-DEFINED DISORDER
     Dates: start: 20040201
  2. ASPIRIN [Concomitant]
  3. METFORMIN HCL [Concomitant]
  4. INSULIN [Concomitant]

REACTIONS (2)
  - DYSPNOEA [None]
  - SWOLLEN TONGUE [None]
